FAERS Safety Report 11500087 (Version 1)
Quarter: 2015Q3

REPORT INFORMATION
  Report Type: Report from Study
  Country: BR (occurrence: BR)
  Receive Date: 20150914
  Receipt Date: 20150914
  Transmission Date: 20151125
  Serious: Yes (Other)
  Sender: FDA-Public Use
  Company Number: BR-AEGERION PHARMACEUTICALS-AEGR002036

PATIENT

DRUGS (1)
  1. JUXTAPID [Suspect]
     Active Substance: LOMITAPIDE MESYLATE
     Indication: PRODUCT USED FOR UNKNOWN INDICATION
     Route: 048

REACTIONS (6)
  - Therapy cessation [Unknown]
  - Exposure during pregnancy [Unknown]
  - Lipids abnormal [Unknown]
  - Product used for unknown indication [Unknown]
  - Abortion spontaneous [Unknown]
  - Hypothyroidism [Unknown]
